FAERS Safety Report 13698196 (Version 4)
Quarter: 2018Q1

REPORT INFORMATION
  Report Type: Spontaneous
  Country: US (occurrence: US)
  Receive Date: 20170628
  Receipt Date: 20180111
  Transmission Date: 20180508
  Serious: No
  Sender: FDA-Public Use
  Company Number: US-PFIZER INC-2017275933

PATIENT
  Age: 75 Year
  Sex: Female

DRUGS (9)
  1. HYDROCHLOROTHIAZIDE. [Concomitant]
     Active Substance: HYDROCHLOROTHIAZIDE
     Dosage: 12.5 MG, UNK
  2. SUTENT [Suspect]
     Active Substance: SUNITINIB MALATE
     Indication: COLORECTAL CANCER METASTATIC
     Dosage: 37.5 MG, CYCLIC (1)12.5 MG CAP AND (1) 25MG CAP
  3. OCTREOTIDE. [Concomitant]
     Active Substance: OCTREOTIDE
     Dosage: 20 MG, UNK
  4. NIFEDIPINE. [Concomitant]
     Active Substance: NIFEDIPINE
     Dosage: 30 MG, UNK
  5. METFORMIN [Concomitant]
     Active Substance: METFORMIN HYDROCHLORIDE
     Dosage: 1000 MG, UNK
  6. SUTENT [Suspect]
     Active Substance: SUNITINIB MALATE
     Dosage: 25 MG, CYCLIC [2 WEEKS ON/1 WEEK OFF]
     Dates: start: 20170630
  7. SUTENT [Suspect]
     Active Substance: SUNITINIB MALATE
     Dosage: 12.5 MG, UNK
  8. PRAVASTATIN. [Concomitant]
     Active Substance: PRAVASTATIN
     Dosage: 40 MG, UNK
  9. SUTENT [Suspect]
     Active Substance: SUNITINIB MALATE
     Dosage: 25 MG, DAILY
     Route: 048

REACTIONS (7)
  - Glycosylated haemoglobin decreased [Unknown]
  - Product use in unapproved indication [Unknown]
  - Blood pressure increased [Recovered/Resolved]
  - Abdominal distension [Unknown]
  - Fatigue [Unknown]
  - Dyspepsia [Unknown]
  - Flatulence [Unknown]
